FAERS Safety Report 8143798-1 (Version None)
Quarter: 2012Q1

REPORT INFORMATION
  Report Type: 
  Country: None (occurrence: None)
  Receive Date: 20120217
  Receipt Date: 20120205
  Transmission Date: 20120608
  Serious: Yes (Other)
  Sender: FDA-Public Use
  Company Number: IN-RANBAXY-2011RR-50821

PATIENT
  Age: 18 Year
  Sex: Male

DRUGS (6)
  1. OFLOXACIN [Suspect]
     Indication: PULMONARY TUBERCULOSIS
     Dosage: UNK
     Route: 065
  2. KANAMYCIN [Suspect]
     Indication: PULMONARY TUBERCULOSIS
     Dosage: UNK
     Route: 065
  3. CYCLOSERINE [Suspect]
     Indication: PULMONARY TUBERCULOSIS
     Dosage: UNK
     Route: 065
  4. ETHAMBUTOL HYDROCHLORIDE [Suspect]
     Indication: PULMONARY TUBERCULOSIS
     Dosage: UNK
     Route: 065
  5. PYRAZINAMIDE [Suspect]
     Indication: PULMONARY TUBERCULOSIS
     Dosage: 1500 MG/DAY
     Route: 065
  6. ETHIONAMIDE [Suspect]
     Indication: PULMONARY TUBERCULOSIS
     Dosage: UNK
     Route: 065

REACTIONS (1)
  - DELUSIONAL DISORDER, MIXED TYPE [None]
